FAERS Safety Report 7659055-3 (Version None)
Quarter: 2011Q3

REPORT INFORMATION
  Report Type: 
  Country: None (occurrence: None)
  Receive Date: 20110805
  Receipt Date: 20110802
  Transmission Date: 20111222
  Serious: Yes (Other)
  Sender: FDA-Public Use
  Company Number: US-PFIZER INC-2011063782

PATIENT
  Sex: Male
  Weight: 83 kg

DRUGS (4)
  1. BUSPAR [Concomitant]
     Dosage: 15 MG, 2X/DAY
  2. STRATTERA [Concomitant]
     Dosage: 80 MG, UNK
  3. ZOLOFT [Suspect]
     Indication: MAJOR DEPRESSION
     Dosage: 200 MG, 1X/DAY
     Route: 048
     Dates: start: 20061001, end: 20110313
  4. SUDAFED 12 HOUR [Concomitant]
     Indication: HYPERSENSITIVITY
     Dosage: UNK

REACTIONS (3)
  - ANGER [None]
  - WITHDRAWAL SYNDROME [None]
  - CRYING [None]
